FAERS Safety Report 15740415 (Version 7)
Quarter: 2020Q2

REPORT INFORMATION
  Report Type: Report from Study
  Country: KR (occurrence: KR)
  Receive Date: 20181219
  Receipt Date: 20200513
  Transmission Date: 20200713
  Serious: Yes (Hospitalization)
  Sender: FDA-Public Use
  Company Number: KR-PFIZER INC-2018509162

PATIENT
  Age: 37 Year
  Sex: Male
  Weight: 68.9 kg

DRUGS (137)
  1. TRAMADOL. [Concomitant]
     Active Substance: TRAMADOL
     Dosage: 50 MG, 3X/DAY
     Route: 042
     Dates: start: 20181206, end: 20181206
  2. ISEPAMICIN [Concomitant]
     Active Substance: ISEPAMICIN
     Indication: BIOPSY BONE MARROW
     Dosage: 400 MG, ONCE
     Dates: start: 20150130, end: 20150201
  3. DEXTROSE W/POTASSIUM CHLORIDE/SODIUM CHLORIDE [Concomitant]
     Dosage: DEXTROSE ELECTROLYTE/NACL/KCL 20MEQ; 1000MG ONCE
     Route: 042
     Dates: start: 20181206, end: 20181207
  4. DICLOFENAC [Concomitant]
     Active Substance: DICLOFENAC
     Dosage: 75 UG, ONCE
     Route: 042
     Dates: start: 20161219, end: 20161219
  5. REBAMIPIDE [Concomitant]
     Active Substance: REBAMIPIDE
     Dosage: 100 MG, ONCE
     Route: 048
     Dates: start: 20180501, end: 20180501
  6. INFLUENZA VIRUS [Concomitant]
     Active Substance: INFLUENZA VIRUS VACCINE
     Dosage: 0.5 ML, ONCE
     Route: 030
     Dates: start: 20171114, end: 20171114
  7. ACETAMINOPHEN. [Concomitant]
     Active Substance: ACETAMINOPHEN
     Dosage: 900 MG, 2X/DAY
     Route: 048
     Dates: start: 20150425, end: 20150425
  8. ACETAMINOPHEN. [Concomitant]
     Active Substance: ACETAMINOPHEN
     Dosage: 650 MG, 4X/DAY
     Route: 048
     Dates: start: 20181208, end: 20181208
  9. COUGH SYRUP [Concomitant]
     Active Substance: DEXTROMETHORPHAN HYDROBROMIDE\GUAIFENESIN
     Dosage: 20 ML, ONCE
     Route: 048
     Dates: start: 20181211, end: 20181211
  10. BACTACIN [Concomitant]
     Dosage: 3 G, SINGLE
     Route: 042
     Dates: start: 20181207, end: 20181207
  11. SODIUM CHLORIDE. [Concomitant]
     Active Substance: SODIUM CHLORIDE
     Dosage: 1000 ML, ONCE
     Route: 042
     Dates: start: 20181214
  12. BOSUTINIB [Suspect]
     Active Substance: BOSUTINIB
     Dosage: 400 MG, 1X/DAY
     Route: 048
     Dates: start: 20150617, end: 20180424
  13. BOSUTINIB [Suspect]
     Active Substance: BOSUTINIB
     Dosage: 300 MG, 1X/DAY
     Route: 048
     Dates: start: 20180509
  14. ISEPAMICIN [Concomitant]
     Active Substance: ISEPAMICIN
     Dosage: 400 MG, ONCE
     Route: 042
     Dates: start: 20150604, end: 20150605
  15. CEFTAZIDIME. [Concomitant]
     Active Substance: CEFTAZIDIME
     Dosage: 2 G, 2X/DAY
     Route: 042
     Dates: start: 20150605, end: 20150605
  16. TRAMADOL. [Concomitant]
     Active Substance: TRAMADOL
     Dosage: 50 MG, ONCE
     Route: 042
     Dates: start: 20180430, end: 20180430
  17. TRAMADOL. [Concomitant]
     Active Substance: TRAMADOL
     Dosage: 50 MG, 2X/DAY
     Route: 042
     Dates: start: 20181207, end: 20181207
  18. SODIUM CHLORIDE. [Concomitant]
     Active Substance: SODIUM CHLORIDE
     Dosage: 100 ML, 3X/DAY
     Route: 042
     Dates: start: 20150607, end: 20150607
  19. DEXTROSE. [Concomitant]
     Active Substance: DEXTROSE
     Dosage: 1200 ML, ONCE
     Route: 042
     Dates: start: 20150129, end: 20150130
  20. DEXTROSE. [Concomitant]
     Active Substance: DEXTROSE
     Dosage: 1000 ML, ONCE
     Route: 042
     Dates: start: 20181208, end: 20181213
  21. ALUMINUM HYDROXIDE [ALUMINIUM HYDROXIDE] [Concomitant]
     Active Substance: ALUMINUM HYDROXIDE
     Dosage: 300 MG, 3X/DAY
     Route: 048
     Dates: start: 20180320, end: 20180322
  22. LEGALON [Concomitant]
     Active Substance: DIETARY SUPPLEMENT\HERBALS\MILK THISTLE
     Dosage: 140 MG, ONCE
     Route: 048
     Dates: start: 20180501, end: 20180501
  23. REBAMIPIDE [Concomitant]
     Active Substance: REBAMIPIDE
     Dosage: 100 MG, 3X/DAY
     Route: 048
     Dates: start: 20180428, end: 20180507
  24. AMOXICILLIN. [Concomitant]
     Active Substance: AMOXICILLIN
     Dosage: 1000 MG, 2X/DAY
     Route: 048
     Dates: start: 20170914, end: 20170920
  25. CLARITHROMYCIN. [Concomitant]
     Active Substance: CLARITHROMYCIN
     Dosage: 500 MG, 2X/DAY
     Route: 048
     Dates: start: 20170914, end: 20170920
  26. ACETAMINOPHEN. [Concomitant]
     Active Substance: ACETAMINOPHEN
     Dosage: 650 MG, 2X/DAY
     Route: 048
     Dates: start: 20180426, end: 20180426
  27. ACETAMINOPHEN. [Concomitant]
     Active Substance: ACETAMINOPHEN
     Dosage: 650 MG, 3X/DAY
     Route: 048
     Dates: start: 20181209, end: 20181211
  28. BACITRACIN. [Concomitant]
     Active Substance: BACITRACIN
     Dosage: 3 MG, 4X/DAY
     Route: 042
     Dates: start: 20181208, end: 20181213
  29. HYDROCORTISONE. [Concomitant]
     Active Substance: HYDROCORTISONE
     Dosage: 100 MG, ONCE
     Route: 042
     Dates: start: 20181207, end: 20181207
  30. DEXLANSOPRAZOLE [Concomitant]
     Active Substance: DEXLANSOPRAZOLE
     Dosage: 30 MG, ONCE
     Route: 048
     Dates: start: 20181211, end: 20181212
  31. DIOCTAHEDRAL SMECTITE [Concomitant]
     Active Substance: MONTMORILLONITE
     Dosage: 20 ML, ONCE
     Route: 048
     Dates: start: 20181209, end: 20181213
  32. DIOCTAHEDRAL SMECTITE [Concomitant]
     Active Substance: MONTMORILLONITE
     Dosage: 20 ML, ONCE
     Route: 048
     Dates: start: 20181215, end: 20181220
  33. COUGH SYRUP [Concomitant]
     Active Substance: DEXTROMETHORPHAN HYDROBROMIDE\GUAIFENESIN
     Dosage: 20 ML, ONCE
     Route: 048
     Dates: start: 20181214, end: 20181214
  34. COUGH SYRUP [Concomitant]
     Active Substance: DEXTROMETHORPHAN HYDROBROMIDE\GUAIFENESIN
     Dosage: 20 ML, 3X/DAY
     Route: 048
     Dates: start: 20181215, end: 20181220
  35. BACTACIN [Concomitant]
     Dosage: 3 G, 3X/DAY
     Route: 042
     Dates: start: 20181208, end: 20181208
  36. BOSUTINIB [Suspect]
     Active Substance: BOSUTINIB
     Indication: MYELOID LEUKAEMIA
     Dosage: 400 MG, 1X/DAY
     Route: 048
     Dates: start: 20150213, end: 20150603
  37. CEFTAZIDIME. [Concomitant]
     Active Substance: CEFTAZIDIME
     Dosage: 4 G, ONCE
     Route: 042
     Dates: start: 20150605, end: 20150605
  38. TAZOPERAN [Concomitant]
     Dosage: 4.5 G, 3X/DAY
     Route: 042
     Dates: start: 20150607, end: 20150607
  39. SODIUM BICARBONATE. [Concomitant]
     Active Substance: SODIUM BICARBONATE
     Indication: BIOPSY BONE MARROW
     Dosage: 40 MG, ONCE
     Route: 042
     Dates: start: 20150130, end: 20150201
  40. METOCLOPRAMIDE. [Concomitant]
     Active Substance: METOCLOPRAMIDE
     Indication: BIOPSY BONE MARROW
     Dosage: 10 MG, ONCE
     Route: 042
     Dates: start: 20150130, end: 20150130
  41. SODIUM CHLORIDE. [Concomitant]
     Active Substance: SODIUM CHLORIDE
     Dosage: 100 ML, ONCE
     Route: 042
     Dates: start: 20150604, end: 20150604
  42. SODIUM CHLORIDE. [Concomitant]
     Active Substance: SODIUM CHLORIDE
     Dosage: 100 ML, ONCE
     Route: 042
     Dates: start: 20161219, end: 20161219
  43. PETHIDINE [Concomitant]
     Active Substance: MEPERIDINE
     Dosage: 25 MG, ONCE
     Route: 042
     Dates: start: 20150730, end: 20150730
  44. LIDOCAINE. [Concomitant]
     Active Substance: LIDOCAINE
     Dosage: 3.6 ML, ONCE
     Route: 042
     Dates: start: 20161219, end: 20161219
  45. SODIUM BICARBONATE. [Concomitant]
     Active Substance: SODIUM BICARBONATE
     Dosage: 40 MEQ, SINGLE
     Route: 042
     Dates: start: 20181208, end: 20181213
  46. FERROUS SULFATE. [Concomitant]
     Active Substance: FERROUS SULFATE
     Dosage: 512 MG, 2X/DAY
     Route: 048
     Dates: start: 20160923, end: 20161214
  47. ACETAMINOPHEN. [Concomitant]
     Active Substance: ACETAMINOPHEN
     Dosage: 1300 MG, 3X/DAY
     Route: 048
     Dates: start: 20180320, end: 20180322
  48. ACETAMINOPHEN. [Concomitant]
     Active Substance: ACETAMINOPHEN
     Dosage: 650 MG, 3X/DAY
     Route: 048
     Dates: start: 20181207, end: 20181207
  49. HEPARIN [Concomitant]
     Active Substance: HEPARIN SODIUM
     Dosage: 1000 IU, ONCE
     Route: 042
     Dates: start: 20180424, end: 20180424
  50. HYALURONIC ACID [Concomitant]
     Active Substance: HYALURONIC ACID
     Dosage: 0.5 ML, AS NEEDED (OCULAR)
     Route: 047
     Dates: start: 20180425, end: 20180425
  51. URSODEOXYCHOLIC ACID [Concomitant]
     Active Substance: URSODIOL
     Dosage: 100 MG, 2X/DAY
     Route: 048
     Dates: start: 20181207, end: 20181208
  52. SILYMARIN [Concomitant]
     Active Substance: DIETARY SUPPLEMENT\HERBALS\MILK THISTLE
     Dosage: 140 MG, 2X/DAY
     Route: 048
     Dates: start: 20181207, end: 20181207
  53. ALLOPURINOL. [Concomitant]
     Active Substance: ALLOPURINOL
     Dosage: 200 MG, 2X/DAY
     Route: 048
     Dates: start: 20150128, end: 20150128
  54. ALLOPURINOL. [Concomitant]
     Active Substance: ALLOPURINOL
     Dosage: 300 MG, 3X/DAY
     Route: 048
     Dates: start: 20150129, end: 20150131
  55. TAZOPERAN [Concomitant]
     Dosage: 4.5 G, 2X/DAY
     Route: 042
     Dates: start: 20150606, end: 20150606
  56. MORPHINE [Concomitant]
     Active Substance: MORPHINE
     Dosage: 20 MG, AS NEEDED
     Route: 042
     Dates: start: 20150130, end: 20150130
  57. SODIUM CHLORIDE. [Concomitant]
     Active Substance: SODIUM CHLORIDE
     Dosage: 1000 ML, ONCE
     Route: 042
     Dates: start: 20181206, end: 20181206
  58. LIDOCAINE. [Concomitant]
     Active Substance: LIDOCAINE
     Dosage: 10 ML, ONCE
     Route: 042
     Dates: start: 20150507, end: 20150507
  59. LIDOCAINE. [Concomitant]
     Active Substance: LIDOCAINE
     Dosage: 10 ML, ONCE
     Route: 042
     Dates: start: 20150730, end: 20150730
  60. FERROUS SULFATE. [Concomitant]
     Active Substance: FERROUS SULFATE
     Dosage: 256 MG, 2X/DAY
     Route: 048
     Dates: start: 20180320, end: 20180430
  61. LEVODROPROPIZINE [Concomitant]
     Active Substance: LEVODROPROPIZINE
     Dosage: 60 MG, 3X/DAY
     Route: 048
     Dates: start: 20180427, end: 20180429
  62. ENDONASE F [Concomitant]
     Dosage: 1.5 GR, ONCE (POW)
     Route: 042
     Dates: start: 20170906, end: 20170906
  63. LANSOPRAZOLE. [Concomitant]
     Active Substance: LANSOPRAZOLE
     Dosage: 60 MG, 2X/DAY
     Route: 048
     Dates: start: 20170914, end: 20170920
  64. BESZYME [Concomitant]
     Dosage: 1 DF, ONCE
     Route: 048
     Dates: start: 20181209, end: 20181209
  65. AMPICILLIN/SULBACTAM [Concomitant]
     Active Substance: AMPICILLIN SODIUM\SULBACTAM SODIUM
     Dosage: 3000 MG, 4X/DAY
     Route: 042
     Dates: start: 20180430, end: 20180501
  66. PHAZYME [SIMETICONE] [Concomitant]
     Dosage: 95 MG, ONCE
     Route: 048
     Dates: start: 20181210, end: 20181210
  67. ALLOPURINOL. [Concomitant]
     Active Substance: ALLOPURINOL
     Dosage: 100 MG, 2X/DAY
     Route: 048
     Dates: start: 20150201, end: 20150201
  68. DEXTROSE 5% [Concomitant]
     Active Substance: DEXTROSE
     Indication: BIOPSY BONE MARROW
     Dosage: 200 MG, AS NEEDED
     Route: 042
     Dates: start: 20150130, end: 20150130
  69. CEFTAZIDIME. [Concomitant]
     Active Substance: CEFTAZIDIME
     Indication: BIOPSY BONE MARROW
     Dosage: 2 GR ONCE
     Route: 042
     Dates: start: 20150130, end: 20150201
  70. CEFTAZIDIME. [Concomitant]
     Active Substance: CEFTAZIDIME
     Dosage: 2 GR ONCE
     Route: 042
     Dates: start: 20150203, end: 20150203
  71. DEXTROSE W/POTASSIUM CHLORIDE/SODIUM CHLORIDE [Concomitant]
     Dosage: DEXTROSE 50G/NACL 4.5G/KCL 1.5G IN 1L; 1000MG ONCE
     Route: 042
     Dates: start: 20150607, end: 20150607
  72. DEXTROSE W/POTASSIUM CHLORIDE/SODIUM CHLORIDE [Concomitant]
     Dosage: DEXTROSE ELECTROLYTE/NACL/KCL 20MEQ; 1000MG ONCE
     Route: 042
     Dates: start: 20180424, end: 20180426
  73. SODIUM CHLORIDE. [Concomitant]
     Active Substance: SODIUM CHLORIDE
     Dosage: 100 ML, ONCE
     Route: 042
     Dates: start: 20150605, end: 20150605
  74. SODIUM CHLORIDE. [Concomitant]
     Active Substance: SODIUM CHLORIDE
     Dosage: 100 ML, ONCE
     Route: 042
     Dates: start: 20150608, end: 20150608
  75. SODIUM CHLORIDE. [Concomitant]
     Active Substance: SODIUM CHLORIDE
     Indication: VEHICLE SOLUTION USE
     Dosage: 50 ML, ONCE
     Route: 042
     Dates: start: 20150203, end: 20150203
  76. DEXTROSE. [Concomitant]
     Active Substance: DEXTROSE
     Dosage: 1000 ML, ONCE
     Route: 042
     Dates: start: 20150201, end: 20150203
  77. CLINDAMYCIN. [Concomitant]
     Active Substance: CLINDAMYCIN
     Dosage: 300 MG, ONCE
     Route: 042
     Dates: start: 20161219, end: 20161219
  78. CLINDAMYCIN. [Concomitant]
     Active Substance: CLINDAMYCIN
     Dosage: 600 MG, 4X/DAY
     Route: 048
     Dates: start: 20161220, end: 20161223
  79. FUROSEMIDE. [Concomitant]
     Active Substance: FUROSEMIDE
     Dosage: 20 MG, ONCE
     Route: 042
     Dates: start: 20180427, end: 20180427
  80. LEGALON [Concomitant]
     Active Substance: DIETARY SUPPLEMENT\HERBALS\MILK THISTLE
     Dosage: 140 MG, 3X/DAY
     Route: 048
     Dates: start: 20180428, end: 20180430
  81. PSEUDOEPHEDRINE. [Concomitant]
     Active Substance: PSEUDOEPHEDRINE HYDROCHLORIDE
     Dosage: 60 MG, ONCE
     Route: 048
     Dates: start: 20180429, end: 20180429
  82. PSEUDOEPHEDRINE. [Concomitant]
     Active Substance: PSEUDOEPHEDRINE HYDROCHLORIDE
     Dosage: 60 MG, ONCE
     Route: 048
     Dates: start: 20180430, end: 20180430
  83. MOXICLE [AMOXICILLIN SODIUM;CLAVULANATE POTASSIUM] [Concomitant]
     Dosage: 625 MG, 3X/DAY
     Route: 048
     Dates: start: 20180501, end: 20180507
  84. INFLUENZA VIRUS [Concomitant]
     Active Substance: INFLUENZA VIRUS VACCINE
     Dosage: 0.5 ML, ONCE
     Route: 030
     Dates: start: 20181018, end: 20181018
  85. MOSAPRIDE [Concomitant]
     Active Substance: MOSAPRIDE
     Dosage: 5 MG, 3X/DAY
     Route: 048
     Dates: start: 20170908, end: 20170914
  86. MEDIUM CHAIN TRIGLYCERIDES [Concomitant]
     Dosage: 500 MG, ONCE
     Route: 042
     Dates: start: 20181208, end: 20181209
  87. POTASSIUM CHLORIDE. [Concomitant]
     Active Substance: POTASSIUM CHLORIDE
     Dosage: 20 MEQ, SINGLE
     Route: 042
     Dates: start: 20181208, end: 20181213
  88. ORNITHINE OXOGLURATE [Concomitant]
     Active Substance: ORNITHINE OXOGLURATE
     Dosage: 1000 MG, DAILY
     Route: 042
     Dates: start: 20181207, end: 20181213
  89. BACTACIN [Concomitant]
     Dosage: 3 G, SINGLE
     Route: 042
     Dates: start: 20181214, end: 20181214
  90. TRAMADOL. [Concomitant]
     Active Substance: TRAMADOL
     Dosage: 50 MG, ONCE
     Route: 042
     Dates: start: 20180425, end: 20180426
  91. MORPHINE [Concomitant]
     Active Substance: MORPHINE
     Indication: BIOPSY BONE MARROW
     Dosage: 3 MG, AS NEEDED
     Route: 042
     Dates: start: 20150129, end: 20150129
  92. PETHIDINE [Concomitant]
     Active Substance: MEPERIDINE
     Indication: BIOPSY BONE MARROW
     Dosage: 25 MG, AS NEEDED
     Route: 042
     Dates: start: 20150130, end: 20150130
  93. DEXTROSE W/POTASSIUM CHLORIDE/SODIUM CHLORIDE [Concomitant]
     Dosage: DEXTROSE 50G/NACL 4.5G/KCL 1.5G IN 1L; 2000MG ONCE
     Route: 042
     Dates: start: 20150606, end: 20150606
  94. SODIUM CHLORIDE. [Concomitant]
     Active Substance: SODIUM CHLORIDE
     Dosage: 100 ML, AS NEEDED
     Route: 042
     Dates: start: 20180425, end: 20180501
  95. SODIUM CHLORIDE. [Concomitant]
     Active Substance: SODIUM CHLORIDE
     Dosage: 1000 ML, ONCE
     Route: 042
     Dates: start: 20181207, end: 20181207
  96. SODIUM BICARBONATE. [Concomitant]
     Active Substance: SODIUM BICARBONATE
     Dosage: 20 ML, ONCE
     Route: 042
     Dates: start: 20150202, end: 20150203
  97. ALUMINUM HYDROXIDE [ALUMINIUM HYDROXIDE] [Concomitant]
     Active Substance: ALUMINUM HYDROXIDE
     Dosage: 600 MG, 2X/DAY
     Route: 048
     Dates: start: 20160923, end: 20161214
  98. TEPRENONE [Concomitant]
     Active Substance: TEPRENONE
     Dosage: 150 MG, 3X/DAY
     Route: 048
     Dates: start: 20161219, end: 20161223
  99. SIMETHICONE (DIMETHICONE) [Concomitant]
     Active Substance: DIMETHICONE
     Dosage: 10 ML, ONCE
     Route: 048
     Dates: start: 20170906, end: 20170906
  100. MIDAZOLAM. [Concomitant]
     Active Substance: MIDAZOLAM
     Dosage: 5 ML, ONCE
     Route: 042
     Dates: start: 20170906, end: 20170906
  101. CIMETROPIUM. [Concomitant]
     Active Substance: CIMETROPIUM
     Dosage: 5 MG, ONCE
     Route: 042
     Dates: start: 20170906, end: 20170906
  102. AZELASTINE. [Concomitant]
     Active Substance: AZELASTINE HYDROCHLORIDE
     Dosage: 1 MG, ONCE
     Route: 048
     Dates: start: 20180428, end: 20180429
  103. LANSOPRAZOLE. [Concomitant]
     Active Substance: LANSOPRAZOLE
     Dosage: 60 MG, ONCE
     Route: 048
     Dates: start: 20170908, end: 20170914
  104. BACTACIN [Concomitant]
     Dosage: 3 G, 4X/DAY
     Route: 042
     Dates: start: 20181209, end: 20181213
  105. MOXICLE [Concomitant]
     Dosage: 625 MG, 3X/DAY
     Route: 048
     Dates: start: 20181215, end: 20181215
  106. ALLOPURINOL. [Concomitant]
     Active Substance: ALLOPURINOL
     Dosage: 100 MG, 3X/DAY
     Route: 048
     Dates: start: 20150202, end: 20150202
  107. TRAMADOL. [Concomitant]
     Active Substance: TRAMADOL
     Dosage: 50 MG, ONCE
     Route: 042
     Dates: start: 20150605, end: 20150605
  108. TRAMADOL. [Concomitant]
     Active Substance: TRAMADOL
     Dosage: 50 MG, ONCE
     Route: 042
     Dates: start: 20181209, end: 20181210
  109. DEXTROSE W/POTASSIUM CHLORIDE/SODIUM CHLORIDE [Concomitant]
     Indication: VEIN DISORDER
     Dosage: DEXTROSE 50G/NACL 4.5G/KCL 1.5G IN 1L; 1000MG ONCE
     Route: 042
     Dates: start: 20150128, end: 20150130
  110. DEXTROSE W/POTASSIUM CHLORIDE/SODIUM CHLORIDE [Concomitant]
     Indication: BIOPSY BONE MARROW
     Dosage: DEXTROSE 50G/NACL 4.5G/KCL 1.5G IN 1L; 1000MG ONCE
     Route: 042
     Dates: start: 20150130, end: 20150202
  111. DEXTROSE W/POTASSIUM CHLORIDE/SODIUM CHLORIDE [Concomitant]
     Dosage: DEXTROSE 50G/NACL 4.5G/KCL 1.5G IN 1L; 1000MG ONCE
     Route: 042
     Dates: start: 20150604, end: 20150605
  112. SODIUM CHLORIDE. [Concomitant]
     Active Substance: SODIUM CHLORIDE
     Indication: VEIN DISORDER
     Dosage: 100 ML, ONCE
     Route: 042
     Dates: start: 20150130, end: 20150202
  113. ZALTOPROFEN [Concomitant]
     Active Substance: ZALTOPROFEN
     Dosage: 240 MG, 3X/DAY
     Route: 048
     Dates: start: 20161219, end: 20161223
  114. PSEUDOEPHEDRINE. [Concomitant]
     Active Substance: PSEUDOEPHEDRINE HYDROCHLORIDE
     Dosage: 60 MG, 2X/DAY
     Route: 048
     Dates: start: 20180428, end: 20180428
  115. NUTRIFLEX LIPID PERI [Concomitant]
     Dosage: 1250 ML, ONCE
     Route: 042
     Dates: start: 20180428, end: 20180430
  116. BESZYME [Concomitant]
     Dosage: 1 DF, 3X/DAY
     Route: 048
     Dates: start: 20180320, end: 20180401
  117. ASPARAGINE-L-ORNITHINE [Concomitant]
     Dosage: 1000 MG, DAILY
     Route: 042
     Dates: start: 20181207, end: 20181213
  118. BACITRACIN. [Concomitant]
     Active Substance: BACITRACIN
     Dosage: 3 MG, 2X/DAY
     Route: 042
     Dates: start: 20181207, end: 20181207
  119. COUGH SYRUP [Concomitant]
     Active Substance: DEXTROMETHORPHAN HYDROBROMIDE\GUAIFENESIN
     Dosage: 20 ML, 3X/DAY
     Route: 048
     Dates: start: 20181212, end: 20181213
  120. SODIUM CHLORIDE. [Concomitant]
     Active Substance: SODIUM CHLORIDE
     Dosage: 1000 ML, AS NEEDED
     Route: 042
     Dates: start: 20181206, end: 20181214
  121. TAZOPERAN [Concomitant]
     Dosage: 4.5 G, ONCE
     Route: 042
     Dates: start: 20150608, end: 20150608
  122. SODIUM CHLORIDE. [Concomitant]
     Active Substance: SODIUM CHLORIDE
     Dosage: 500 ML, ONCE
     Route: 042
     Dates: start: 20150507, end: 20150507
  123. SODIUM CHLORIDE. [Concomitant]
     Active Substance: SODIUM CHLORIDE
     Dosage: 1000 ML, 4X/DAY
     Route: 042
     Dates: start: 20181208, end: 20181213
  124. CEFDITOREN [Concomitant]
     Active Substance: CEFDITOREN
     Indication: BIOPSY BONE MARROW
     Dosage: 100 MG, 3X/DAY
     Route: 048
     Dates: start: 20150203, end: 20150210
  125. DEXTROSE. [Concomitant]
     Active Substance: DEXTROSE
     Indication: VEIN DISORDER
     Dosage: 1000 ML, ONCE
     Route: 042
     Dates: start: 20150128, end: 20150128
  126. PETHIDINE [Concomitant]
     Active Substance: MEPERIDINE
     Dosage: 25 MG, ONCE
     Route: 042
     Dates: start: 20150507, end: 20150507
  127. DESOXIMETASONE. [Concomitant]
     Active Substance: DESOXIMETASONE
     Dosage: 15 G, AS NEEDED
     Route: 023
     Dates: start: 20150702, end: 20180320
  128. SODIUM HYALURONATE [Concomitant]
     Active Substance: HYALURONATE SODIUM
     Dosage: 0.5 ML, AS NEEDED (OCULAR)
     Route: 047
     Dates: start: 20180428, end: 20180428
  129. ACETAMINOPHEN. [Concomitant]
     Active Substance: ACETAMINOPHEN
     Dosage: 650 MG, ONCE
     Route: 048
     Dates: start: 20181206, end: 20181206
  130. MOXIFLOXACIN [MOXIFLOXACIN HYDROCHLORIDE] [Concomitant]
     Dosage: 5 ML, AS NEEDED (OCULAR)
     Route: 047
     Dates: start: 20180425, end: 20180428
  131. METOCLOPRAMIDE. [Concomitant]
     Active Substance: METOCLOPRAMIDE
     Dosage: 10 MG, ONCE
     Route: 042
     Dates: start: 20181209, end: 20181209
  132. URSODEOXYCHOLIC ACID [Concomitant]
     Active Substance: URSODIOL
     Dosage: 100 MG, 2X/DAY
     Route: 048
     Dates: start: 20181209, end: 20181211
  133. NAPROXEN. [Concomitant]
     Active Substance: NAPROXEN
     Dosage: 500 MG, 2X/DAY
     Route: 048
     Dates: start: 20181210, end: 20181211
  134. CEFTRIAXONE. [Concomitant]
     Active Substance: CEFTRIAXONE
     Dosage: 2 MG, ONCE
     Route: 042
     Dates: start: 20181206, end: 20181206
  135. TEICOPLANIN [Concomitant]
     Active Substance: TEICOPLANIN
     Dosage: 800 MG, ONCE
     Route: 042
     Dates: start: 20181207, end: 20181207
  136. FUROSEMIDE. [Concomitant]
     Active Substance: FUROSEMIDE
     Dosage: 20 MG, ONCE
     Route: 042
     Dates: start: 20181214, end: 20181214
  137. LEGALON [Concomitant]
     Active Substance: DIETARY SUPPLEMENT\HERBALS\MILK THISTLE
     Dosage: 140 MG, 3X/DAY
     Route: 048
     Dates: start: 20181215, end: 20181220

REACTIONS (1)
  - Cellulitis [Recovered/Resolved]

NARRATIVE: CASE EVENT DATE: 20181206
